FAERS Safety Report 23314020 (Version 4)
Quarter: 2024Q1

REPORT INFORMATION
  Report Type: Spontaneous
  Country: US (occurrence: US)
  Receive Date: 20231219
  Receipt Date: 20240206
  Transmission Date: 20240410
  Serious: No
  Sender: FDA-Public Use
  Company Number: US-PFIZER INC-202300433785

PATIENT
  Age: 19 Year
  Sex: Female

DRUGS (1)
  1. GENOTROPIN [Suspect]
     Active Substance: SOMATROPIN
     Dosage: 0.5MG INJECTION EVERY NIGHT

REACTIONS (4)
  - Drug dose omission by device [Not Recovered/Not Resolved]
  - Device physical property issue [Not Recovered/Not Resolved]
  - Fatigue [Unknown]
  - Asthenia [Unknown]
